FAERS Safety Report 5651862-1 (Version None)
Quarter: 2008Q1

REPORT INFORMATION
  Report Type: 
  Country: None (occurrence: None)
  Receive Date: 20080305
  Receipt Date: 20080222
  Transmission Date: 20080703
  Serious: Yes (Death)
  Sender: FDA-Public Use
  Company Number: L08-USA-00315-18

PATIENT
  Age: 39 Year
  Sex: Female

DRUGS (10)
  1. ESCITALOPRAM OXALATE [Suspect]
  2. QUETIAPINE [Suspect]
  3. ANGIOTENSIN RECEPTOR BLOCKER (NOT SPECIFIED) (NOT SPECIFIED) [Suspect]
  4. AXOTAL [Suspect]
  5. ASPIRIN [Suspect]
  6. ACETAMINOPHEN [Suspect]
  7. IBUPROFEN [Suspect]
  8. CAFFEINE CITRATE [Suspect]
  9. NAPROXEN [Suspect]
  10. FEXOFENADINE [Suspect]

REACTIONS (5)
  - CARDIAC ARREST [None]
  - COMPLETED SUICIDE [None]
  - DRUG TOXICITY [None]
  - MULTIPLE DRUG OVERDOSE [None]
  - RESPIRATORY ARREST [None]
